FAERS Safety Report 21919301 (Version 1)
Quarter: 2023Q1

REPORT INFORMATION
  Report Type: Spontaneous
  Country: US (occurrence: None)
  Receive Date: 20230127
  Receipt Date: 20230127
  Transmission Date: 20230418
  Serious: No
  Sender: FDA-Public Use
  Company Number: 2023A011101

PATIENT
  Sex: Male
  Weight: 55.3 kg

DRUGS (1)
  1. SYMBICORT [Suspect]
     Active Substance: BUDESONIDE\FORMOTEROL FUMARATE DIHYDRATE
     Indication: Chronic obstructive pulmonary disease
     Dosage: 80/4.5MCG 2 PUFFS TWICE DAILY
     Route: 055

REACTIONS (7)
  - Cough [Unknown]
  - Product use issue [Unknown]
  - Wrong technique in device usage process [Unknown]
  - Incorrect dose administered [Unknown]
  - Expired product administered [Unknown]
  - Device use issue [Unknown]
  - Device malfunction [Unknown]
